FAERS Safety Report 5017798-4 (Version None)
Quarter: 2006Q2

REPORT INFORMATION
  Report Type: 
  Country: None (occurrence: None)
  Receive Date: 20060605
  Receipt Date: 20060529
  Transmission Date: 20061013
  Serious: Yes (Life-Threatening, Hospitalization)
  Sender: FDA-Public Use
  Company Number: PHBS2006US07881

PATIENT
  Age: 50 Year
  Sex: Male

DRUGS (14)
  1. AMITRIPTYLINE HCL [Suspect]
  2. CYCLOBENZAPRINE HCL [Concomitant]
  3. NIFEDIPINE [Concomitant]
  4. OMEPRAZOLE [Concomitant]
  5. SERTRALINE [Concomitant]
  6. ASPIRIN [Concomitant]
  7. INSULIN [Concomitant]
  8. CAFFEINE [Concomitant]
  9. TEA, GREEN [Concomitant]
  10. GRAPEFRUIT JUICE [Concomitant]
  11. MEPIVACAINE HCL [Concomitant]
     Dosage: 45 ML, UNK
  12. TETRACAINE POLYGYL STERILE OPHTHALMIC SOLUTION [Concomitant]
     Dosage: 5 ML, UNK
  13. EPINEPHRINE [Concomitant]
     Dosage: 3 UG/ML, UNK
  14. METOPROLOL [Suspect]

REACTIONS (5)
  - ATRIOVENTRICULAR BLOCK COMPLETE [None]
  - BRADYCARDIA [None]
  - CARDIAC ARREST [None]
  - DRUG INTERACTION [None]
  - HYPOTENSION [None]
